FAERS Safety Report 23244734 (Version 2)
Quarter: 2024Q1

REPORT INFORMATION
  Report Type: Other
  Country: BD (occurrence: None)
  Receive Date: 20231130
  Receipt Date: 20240115
  Transmission Date: 20240410
  Serious: Yes (Hospitalization)
  Sender: FDA-Public Use
  Company Number: BD-ROCHE-3462147

PATIENT
  Age: 67 Year
  Sex: Female

DRUGS (3)
  1. TECENTRIQ [Suspect]
     Active Substance: ATEZOLIZUMAB
     Indication: Hepatocellular carcinoma
     Route: 065
     Dates: start: 20231028
  2. AVASTIN [Suspect]
     Active Substance: BEVACIZUMAB
     Indication: Hepatocellular carcinoma
     Route: 065
     Dates: start: 20231028
  3. AVASTIN [Suspect]
     Active Substance: BEVACIZUMAB
     Route: 065

REACTIONS (2)
  - Vomiting [Unknown]
  - Internal haemorrhage [Unknown]
